FAERS Safety Report 18612315 (Version 1)
Quarter: 2020Q4

REPORT INFORMATION
  Report Type: Spontaneous
  Country: US (occurrence: US)
  Receive Date: 20201214
  Receipt Date: 20201214
  Transmission Date: 20210114
  Serious: Yes (Hospitalization)
  Sender: FDA-Public Use
  Company Number: US-VERTEX PHARMACEUTICALS-2020-024445

PATIENT
  Age: 39 Year
  Sex: Male
  Weight: 60 kg

DRUGS (1)
  1. TRIKAFTA [Suspect]
     Active Substance: ELEXACAFTOR\IVACAFTOR\TEZACAFTOR
     Indication: CYSTIC FIBROSIS
     Dosage: 2 ORANGE TABS IN AM AND 1 BLUE TAB IN PM, 4 TIMES A WEEK AND 2 ORANGE TABS IN PM, 3 TIMES A WEEK.
     Route: 048
     Dates: start: 20191124

REACTIONS (1)
  - Hospitalisation [Unknown]

NARRATIVE: CASE EVENT DATE: 20201116
